FAERS Safety Report 4820519-9 (Version None)
Quarter: 2005Q4

REPORT INFORMATION
  Report Type: 
  Country: None (occurrence: None)
  Receive Date: 20051104
  Receipt Date: 20041104
  Transmission Date: 20060501
  Serious: Yes (Death)
  Sender: FDA-Public Use
  Company Number: GB-GLAXOSMITHKLINE-B0350623A

PATIENT
  Age: 22 Year
  Sex: Male

DRUGS (1)
  1. ACETAMINOPHEN [Suspect]
     Dosage: 32G PER DAY

REACTIONS (8)
  - ANURIA [None]
  - CARDIAC ARREST [None]
  - HEPATIC ENCEPHALOPATHY [None]
  - HEPATIC FAILURE [None]
  - INTENTIONAL DRUG MISUSE [None]
  - OLIGURIA [None]
  - OVERDOSE [None]
  - PUPIL FIXED [None]
